FAERS Safety Report 6083226-3 (Version None)
Quarter: 2009Q1

REPORT INFORMATION
  Report Type: 
  Country: None (occurrence: None)
  Receive Date: 20090219
  Receipt Date: 20090211
  Transmission Date: 20090719
  Serious: Yes (Hospitalization, Other)
  Sender: FDA-Public Use
  Company Number: US-JNJFOC-20090203437

PATIENT
  Sex: Female
  Weight: 104.33 kg

DRUGS (9)
  1. DURAGESIC-100 [Suspect]
     Route: 062
  2. DURAGESIC-100 [Suspect]
     Route: 062
  3. DURAGESIC-100 [Suspect]
     Indication: BACK PAIN
     Dosage: 100+100+100 MCG
     Route: 062
  4. OXYCODONE HCL [Concomitant]
     Indication: PAIN
     Route: 048
  5. PRILOSEC [Concomitant]
     Indication: GASTROOESOPHAGEAL REFLUX DISEASE
     Route: 048
  6. DETROL LA [Concomitant]
     Indication: URINARY INCONTINENCE
     Route: 048
  7. CELEBREX [Concomitant]
     Indication: PAIN
     Route: 048
  8. ZOCOR [Concomitant]
     Indication: BLOOD CHOLESTEROL INCREASED
     Route: 048
  9. LEXAPRO [Concomitant]
     Indication: DEPRESSION
     Route: 048

REACTIONS (11)
  - APPLICATION SITE IRRITATION [None]
  - APPLICATION SITE ULCER [None]
  - BACK INJURY [None]
  - BLOOD GLUCOSE INCREASED [None]
  - DEPRESSION [None]
  - INCORRECT DRUG ADMINISTRATION DURATION [None]
  - MYALGIA [None]
  - NEURALGIA [None]
  - OEDEMA PERIPHERAL [None]
  - PAIN [None]
  - SOMNOLENCE [None]
